FAERS Safety Report 17586675 (Version 1)
Quarter: 2020Q1

REPORT INFORMATION
  Report Type: Spontaneous
  Country: CA (occurrence: CA)
  Receive Date: 20200326
  Receipt Date: 20200326
  Transmission Date: 20200409
  Serious: Yes (Life-Threatening)
  Sender: FDA-Public Use
  Company Number: CA-TEVA-2020-CA-1214656

PATIENT
  Age: 50 Year
  Sex: Male

DRUGS (3)
  1. TRAZODONE [Concomitant]
     Active Substance: TRAZODONE HYDROCHLORIDE
  2. OXAZEPAM. [Concomitant]
     Active Substance: OXAZEPAM
  3. DICLOFENAC W/MISOPROSTOL TABLETS [Suspect]
     Active Substance: DICLOFENAC SODIUM\MISOPROSTOL
     Indication: PAIN
     Dosage: 2 DOSAGE FORMS DAILY;
     Route: 048

REACTIONS (4)
  - Abdominal discomfort [Unknown]
  - Dyspnoea [Unknown]
  - Feeling hot [Unknown]
  - Malaise [Unknown]
